FAERS Safety Report 4356731-5 (Version None)
Quarter: 2004Q2

REPORT INFORMATION
  Report Type: 
  Country: None (occurrence: None)
  Receive Date: 20040507
  Receipt Date: 20040428
  Transmission Date: 20050107
  Serious: No
  Sender: FDA-Public Use
  Company Number: 2004UW08726

PATIENT
  Age: 31 Year

DRUGS (2)
  1. SEROQUEL [Suspect]
     Dosage: 1000 MG DAILY PO
     Route: 048
  2. DEPAKOTE [Concomitant]

REACTIONS (3)
  - COMA [None]
  - ELECTROCARDIOGRAM QT CORRECTED INTERVAL PROLONGED [None]
  - OVERDOSE [None]
